FAERS Safety Report 5031638-9 (Version None)
Quarter: 2006Q2

REPORT INFORMATION
  Report Type: 
  Country: None (occurrence: None)
  Receive Date: 20060621
  Receipt Date: 20060613
  Transmission Date: 20061013
  Serious: Yes (Life-Threatening, Hospitalization)
  Sender: FDA-Public Use
  Company Number: DE-ROCHE-451351

PATIENT
  Age: 54 Year
  Sex: Female

DRUGS (2)
  1. ZENAPAX [Suspect]
     Indication: LIVER TRANSPLANT
     Route: 065
     Dates: start: 20060601
  2. TACROLIMUS [Suspect]
     Indication: LIVER TRANSPLANT
     Route: 048
     Dates: start: 20060601

REACTIONS (3)
  - COMPLICATIONS OF TRANSPLANTED LIVER [None]
  - HEPATIC ENZYME INCREASED [None]
  - RENAL FAILURE ACUTE [None]
